FAERS Safety Report 4800219-1 (Version None)
Quarter: 2005Q4

REPORT INFORMATION
  Report Type: 
  Country: None (occurrence: None)
  Receive Date: 20051017
  Receipt Date: 20051004
  Transmission Date: 20060501
  Serious: Yes (Other)
  Sender: FDA-Public Use
  Company Number: 2005AC01583

PATIENT
  Age: 74 Year
  Sex: Female

DRUGS (4)
  1. GEFITINIB [Suspect]
     Indication: BRONCHIOLOALVEOLAR CARCINOMA
     Route: 048
     Dates: start: 20030601
  2. WARFARIN [Interacting]
     Indication: THROMBOSIS PROPHYLAXIS
  3. WARFARIN [Interacting]
  4. WARFARIN [Interacting]

REACTIONS (2)
  - DRUG INTERACTION [None]
  - INTERNATIONAL NORMALISED RATIO INCREASED [None]
